FAERS Safety Report 9782983 (Version 1)
Quarter: 2013Q4

REPORT INFORMATION
  Report Type: Spontaneous
  Country: US (occurrence: None)
  Receive Date: 20131224
  Receipt Date: 20131224
  Transmission Date: 20140711
  Serious: Yes (Life-Threatening, Hospitalization, Disabling)
  Sender: FDA-Public Use
  Company Number: None

PATIENT
  Age: 22 Year
  Sex: Male
  Weight: 68.04 kg

DRUGS (1)
  1. ADDERALL [Suspect]
     Indication: ATTENTION DEFICIT/HYPERACTIVITY DISORDER
     Dosage: 8-10 MONTHS

REACTIONS (13)
  - Drug abuse [None]
  - Anger [None]
  - Personality change [None]
  - Hallucination, visual [None]
  - Drug dependence [None]
  - Insomnia [None]
  - Psychotic disorder [None]
  - Weight decreased [None]
  - Paranoia [None]
  - Neurosis [None]
  - Obsessive-compulsive disorder [None]
  - Withdrawal syndrome [None]
  - Delusion [None]
